FAERS Safety Report 8457049-1 (Version None)
Quarter: 2012Q2

REPORT INFORMATION
  Report Type: 
  Country: None (occurrence: None)
  Receive Date: 20120621
  Receipt Date: 20120618
  Transmission Date: 20120825
  Serious: Yes (Other)
  Sender: FDA-Public Use
  Company Number: DE-ELI_LILLY_AND_COMPANY-DE201206005898

PATIENT
  Sex: Female

DRUGS (7)
  1. FORTEO [Suspect]
     Indication: OSTEOPOROSIS
     Dosage: UNK, QD
     Route: 058
     Dates: start: 20110315
  2. VITAMIN D [Concomitant]
  3. CORTISONE ACETATE [Concomitant]
     Dosage: 10 MG, UNK
  4. ANALGESICS [Concomitant]
  5. HORMONES [Concomitant]
     Indication: THYROID DISORDER
  6. IBUPROFEN [Concomitant]
     Dosage: 600 MG, UNK
  7. CALCIUM [Concomitant]

REACTIONS (5)
  - LOSS OF CONSCIOUSNESS [None]
  - PAIN [None]
  - FALL [None]
  - INFLAMMATION [None]
  - FATIGUE [None]
